FAERS Safety Report 14947322 (Version 1)
Quarter: 2018Q2

REPORT INFORMATION
  Report Type: Spontaneous
  Country: RU (occurrence: RU)
  Receive Date: 20180529
  Receipt Date: 20180529
  Transmission Date: 20180711
  Serious: Yes (Other)
  Sender: FDA-Public Use
  Company Number: RU-PFIZER INC-2018211572

PATIENT

DRUGS (1)
  1. VFEND [Suspect]
     Active Substance: VORICONAZOLE
     Dosage: UNK

REACTIONS (1)
  - Neurotoxicity [Unknown]
